FAERS Safety Report 21717930 (Version 1)
Quarter: 2022Q4

REPORT INFORMATION
  Report Type: Spontaneous
  Country: US (occurrence: US)
  Receive Date: 20221212
  Receipt Date: 20221212
  Transmission Date: 20230113
  Serious: No
  Sender: FDA-Public Use
  Company Number: US-Global Blood Therapeutics Inc-US-GBT-22-03653

PATIENT
  Age: 47 Year
  Sex: Female

DRUGS (3)
  1. OXBRYTA [Suspect]
     Active Substance: VOXELOTOR
     Indication: Sickle cell disease
     Route: 048
  2. OXBRYTA [Suspect]
     Active Substance: VOXELOTOR
     Indication: Sickle cell disease
  3. OXBRYTA [Suspect]
     Active Substance: VOXELOTOR
     Indication: Sickle cell disease
     Dates: start: 20220613

REACTIONS (6)
  - Dehydration [Unknown]
  - Asthenia [Recovering/Resolving]
  - Diarrhoea [Recovered/Resolved]
  - Abdominal distension [Unknown]
  - Fatigue [Unknown]
  - Flatulence [Unknown]

NARRATIVE: CASE EVENT DATE: 20220501
